FAERS Safety Report 12159861 (Version 1)
Quarter: 2016Q1

REPORT INFORMATION
  Report Type: Spontaneous
  Country: US (occurrence: None)
  Receive Date: 20160307
  Receipt Date: 20160307
  Transmission Date: 20160526
  Serious: Yes (Other)
  Sender: FDA-Public Use
  Company Number: None

PATIENT
  Age: 70 Year
  Sex: Male
  Weight: 88.45 kg

DRUGS (1)
  1. XIAFLEX [Suspect]
     Active Substance: COLLAGENASE CLOSTRIDIUM HISTOLYTICUM

REACTIONS (4)
  - Tendonitis [None]
  - Immune system disorder [None]
  - Drug cross-reactivity [None]
  - Synovitis [None]

NARRATIVE: CASE EVENT DATE: 20151201
